FAERS Safety Report 7484399-8 (Version None)
Quarter: 2011Q2

REPORT INFORMATION
  Report Type: 
  Country: None (occurrence: None)
  Receive Date: 20110517
  Receipt Date: 20110503
  Transmission Date: 20111010
  Serious: Yes (Other)
  Sender: FDA-Public Use
  Company Number: CA-JNJFOC-20110502023

PATIENT
  Sex: Male
  Weight: 113.6 kg

DRUGS (7)
  1. MESALAMINE [Concomitant]
  2. IMURAN [Concomitant]
  3. CORTIFOAM [Concomitant]
     Route: 054
  4. ASACOL [Concomitant]
  5. REMICADE [Suspect]
     Indication: CROHN'S DISEASE
     Route: 042
     Dates: start: 20110201
  6. FERROUS SULFATE TAB [Concomitant]
  7. PANTOLOC [Concomitant]

REACTIONS (1)
  - LACERATION [None]
